FAERS Safety Report 6270068-9 (Version None)
Quarter: 2009Q3

REPORT INFORMATION
  Report Type: 
  Country: None (occurrence: None)
  Receive Date: 20090716
  Receipt Date: 20090709
  Transmission Date: 20100115
  Serious: Yes (Other)
  Sender: FDA-Public Use
  Company Number: US-JNJFOC-20090703795

PATIENT
  Sex: Female
  Weight: 55.79 kg

DRUGS (9)
  1. DURAGESIC-100 [Suspect]
     Indication: PAIN
     Route: 062
  2. TOPAMAX [Suspect]
     Indication: MIGRAINE PROPHYLAXIS
     Route: 048
  3. CORTEF [Concomitant]
     Indication: HYPOTHALAMO-PITUITARY DISORDER
     Route: 048
  4. FLUTICASONE [Concomitant]
     Indication: MULTIPLE ALLERGIES
     Route: 045
  5. PROTONIX [Concomitant]
     Indication: GASTROOESOPHAGEAL REFLUX DISEASE
     Route: 048
  6. SYNTHROID [Concomitant]
     Indication: HYPOTHYROIDISM
     Route: 048
  7. CLARITIN [Concomitant]
     Indication: MULTIPLE ALLERGIES
     Route: 048
  8. CLONAZEPAM [Concomitant]
     Indication: PANIC ATTACK
     Route: 048
  9. LIDODERM [Concomitant]
     Indication: PAIN
     Route: 062

REACTIONS (7)
  - ADRENAL INSUFFICIENCY [None]
  - MIGRAINE [None]
  - OEDEMA PERIPHERAL [None]
  - OSTEOPOROSIS [None]
  - PRODUCT QUALITY ISSUE [None]
  - VAGINAL HAEMORRHAGE [None]
  - WITHDRAWAL SYNDROME [None]
